FAERS Safety Report 9459008 (Version 2)
Quarter: 2013Q4

REPORT INFORMATION
  Report Type: Spontaneous
  Country: FR (occurrence: FR)
  Receive Date: 20130814
  Receipt Date: 20131022
  Transmission Date: 20140711
  Serious: Yes (Other)
  Sender: FDA-Public Use
  Company Number: FR-BRISTOL-MYERS SQUIBB COMPANY-19169556

PATIENT
  Age: 47 Year
  Sex: Male

DRUGS (4)
  1. REYATAZ CAPS 300 MG [Suspect]
     Indication: HIV INFECTION
     Route: 048
     Dates: start: 20090429
  2. NORVIR [Suspect]
     Indication: HIV INFECTION
     Route: 048
     Dates: start: 20090429
  3. KIVEXA [Suspect]
     Indication: HIV INFECTION
     Route: 048
     Dates: start: 20120316, end: 20120422
  4. TRUVADA [Suspect]
     Indication: HIV INFECTION
     Dates: end: 20130316

REACTIONS (4)
  - Insomnia [Unknown]
  - Irritability [Unknown]
  - Gastrointestinal disorder [Unknown]
  - Renal failure [Unknown]
